FAERS Safety Report 4350726-3 (Version None)
Quarter: 2004Q2

REPORT INFORMATION
  Report Type: 
  Country: None (occurrence: None)
  Receive Date: 20040428
  Receipt Date: 20040305
  Transmission Date: 20050107
  Serious: Yes (Hospitalization)
  Sender: FDA-Public Use
  Company Number: 6007802

PATIENT
  Age: 63 Year
  Sex: Male

DRUGS (16)
  1. BISOPROLOL(TABLETS) (BISOPROLOL) [Suspect]
     Indication: ATRIAL FIBRILLATION
     Dosage: 10,000 MG (5 MG, 2 IN 1 D)  ; 7,500 MG (7,5 MG, 1 IN 1D) ORAL
     Route: 048
     Dates: start: 20030101, end: 20030311
  2. BISOPROLOL(TABLETS) (BISOPROLOL) [Suspect]
     Indication: ATRIAL FLUTTER
     Dosage: 10,000 MG (5 MG, 2 IN 1 D)  ; 7,500 MG (7,5 MG, 1 IN 1D) ORAL
     Route: 048
     Dates: start: 20030101, end: 20030311
  3. BISOPROLOL(TABLETS) (BISOPROLOL) [Suspect]
     Indication: ATRIAL FIBRILLATION
     Dosage: 10,000 MG (5 MG, 2 IN 1 D)  ; 7,500 MG (7,5 MG, 1 IN 1D) ORAL
     Route: 048
     Dates: start: 20030311
  4. BISOPROLOL(TABLETS) (BISOPROLOL) [Suspect]
     Indication: ATRIAL FLUTTER
     Dosage: 10,000 MG (5 MG, 2 IN 1 D)  ; 7,500 MG (7,5 MG, 1 IN 1D) ORAL
     Route: 048
     Dates: start: 20030311
  5. ACENOCOUMAROL [Concomitant]
  6. LANOXIN [Concomitant]
  7. FOLIC ACID [Concomitant]
  8. VITAMIN B COMPLEX CAP [Concomitant]
  9. MAGNESIUM OXIDE [Concomitant]
  10. FUROSEMIDE [Concomitant]
  11. ASCORBIC ACID [Concomitant]
  12. LIPITOR [Concomitant]
  13. POTASSIUM CHLORIDE [Concomitant]
  14. CAPTOPRIL [Concomitant]
  15. ISODRIL (PHENYLEPHRINE HYDROCHLORIDE, CHLORHEXIDINE GLUCONATE) [Concomitant]
  16. OXAZEPAM [Concomitant]

REACTIONS (2)
  - SLEEP APNOEA SYNDROME [None]
  - STUPOR [None]
